FAERS Safety Report 14644892 (Version 2)
Quarter: 2018Q1

REPORT INFORMATION
  Report Type: Spontaneous
  Country: FR (occurrence: FR)
  Receive Date: 20180315
  Receipt Date: 20180321
  Transmission Date: 20180509
  Serious: Yes (Hospitalization)
  Sender: FDA-Public Use
  Company Number: FR-ASTRAZENECA-2018SE30479

PATIENT
  Age: 85 Year
  Sex: Female
  Weight: 59 kg

DRUGS (12)
  1. METFORMIN [Suspect]
     Active Substance: METFORMIN HYDROCHLORIDE
     Indication: TYPE 2 DIABETES MELLITUS
     Route: 048
     Dates: end: 20180216
  2. CANDESARTAN CILEXETIL. [Suspect]
     Active Substance: CANDESARTAN CILEXETIL
     Indication: HYPERTENSION
     Route: 048
     Dates: end: 20180216
  3. PRAVASTATIN. [Concomitant]
     Active Substance: PRAVASTATIN
  4. ULTRALEVURE [Concomitant]
     Active Substance: SACCHAROMYCES CEREVISIAE
  5. TRIMEBUTINE [Concomitant]
     Active Substance: TRIMEBUTINE
  6. INVANZ [Suspect]
     Active Substance: ERTAPENEM SODIUM
     Indication: KLEBSIELLA INFECTION
     Route: 042
     Dates: start: 20180207, end: 20180216
  7. CANDESARTAN CILEXETIL. [Suspect]
     Active Substance: CANDESARTAN CILEXETIL
     Indication: HYPERTENSION
     Route: 048
     Dates: end: 20180216
  8. PARACETAMOL [Concomitant]
     Active Substance: ACETAMINOPHEN
  9. LYRICA [Concomitant]
     Active Substance: PREGABALIN
  10. ADENURIC [Concomitant]
     Active Substance: FEBUXOSTAT
  11. KARDEGIC [Concomitant]
     Active Substance: ASPIRIN DL-LYSINE
  12. TANGANIL [Concomitant]
     Active Substance: ACETYLLEUCINE

REACTIONS (2)
  - Confusional state [Not Recovered/Not Resolved]
  - Hallucination [Not Recovered/Not Resolved]

NARRATIVE: CASE EVENT DATE: 20180214
